FAERS Safety Report 25532148 (Version 2)
Quarter: 2025Q3

REPORT INFORMATION
  Report Type: Report from Study
  Country: IN (occurrence: IN)
  Receive Date: 20250709
  Receipt Date: 20250923
  Transmission Date: 20251021
  Serious: Yes (Death, Hospitalization)
  Sender: ROCHE
  Company Number: IN-ROCHE-10000330717

PATIENT
  Age: 78 Year
  Sex: Female
  Weight: 57 kg

DRUGS (1)
  1. AVASTIN [Suspect]
     Active Substance: BEVACIZUMAB
     Indication: Lung cancer metastatic
     Dosage: 21
     Route: 042
     Dates: start: 20240918, end: 20250415

REACTIONS (3)
  - Haemoglobin decreased [Fatal]
  - Internal haemorrhage [Fatal]
  - Blood creatinine increased [Fatal]

NARRATIVE: CASE EVENT DATE: 20250609
